FAERS Safety Report 7981718-0 (Version None)
Quarter: 2011Q4

REPORT INFORMATION
  Report Type: 
  Country: None (occurrence: None)
  Receive Date: 20111213
  Receipt Date: 20111201
  Transmission Date: 20120403
  Serious: No
  Sender: FDA-Public Use
  Company Number: 1000023754

PATIENT
  Age: 84 Year
  Sex: Male
  Weight: 71 kg

DRUGS (5)
  1. LEVODOPA/CARBIDOPE (LEVODOPA, CARBIDOPA) (LEVODOPA, CARBIDOPA) [Concomitant]
  2. MEMANTINE HYDROCHLORIDE [Suspect]
     Dates: start: 20110721, end: 20110727
  3. HJERDYL (ACETYLSALICYLIC ACID) (ACETYLSALICYLIC ACID) [Concomitant]
  4. LAMOTRIGIN (LAMOTRIGINE) (LAMOTRIGINE) [Concomitant]
  5. SIMVASTATIN [Concomitant]

REACTIONS (3)
  - DEPRESSED LEVEL OF CONSCIOUSNESS [None]
  - FALL [None]
  - MUSCULOSKELETAL STIFFNESS [None]
